FAERS Safety Report 10703662 (Version 1)
Quarter: 2015Q1

REPORT INFORMATION
  Report Type: Spontaneous
  Country: ES (occurrence: ES)
  Receive Date: 20150112
  Receipt Date: 20150112
  Transmission Date: 20150721
  Serious: Yes (Death)
  Sender: FDA-Public Use
  Company Number: ES-CIPLA LTD.-2014ES03082

PATIENT

DRUGS (4)
  1. TENOFOVIR DISOFOXIL FUMARATE [Suspect]
     Active Substance: TENOFOVIR DISOPROXIL FUMARATE
     Indication: CHRONIC HEPATITIS B
     Dosage: 300 MG ONCE DAILY FOR 1 YEAR
  2. ADEFOVIR DIPIVOXIL. [Suspect]
     Active Substance: ADEFOVIR DIPIVOXIL
     Indication: CHRONIC HEPATITIS B
     Dosage: 10 MG ONCE DAILY FOR 1 YEAR
  3. TENOFOVIR DISOFOXIL FUMARATE [Suspect]
     Active Substance: TENOFOVIR DISOPROXIL FUMARATE
     Dosage: FOR 7 YEARS, FOR A TOTAL STUDY DURATION OF UP TO 8 YEARS (384 WEEKS).
  4. EMTRICITABINE [Suspect]
     Active Substance: EMTRICITABINE
     Indication: CHRONIC HEPATITIS B

REACTIONS (1)
  - Hepatocellular carcinoma [Fatal]
